FAERS Safety Report 11285018 (Version 1)
Quarter: 2015Q3

REPORT INFORMATION
  Report Type: Spontaneous
  Country: FR (occurrence: FR)
  Receive Date: 20150720
  Receipt Date: 20150720
  Transmission Date: 20151125
  Serious: Yes (Death)
  Sender: FDA-Public Use
  Company Number: FR-TEVA-579366ISR

PATIENT
  Age: 83 Year
  Sex: Male

DRUGS (1)
  1. FUROSEMIDE 500 MG [Suspect]
     Active Substance: FUROSEMIDE

REACTIONS (1)
  - Death [Fatal]
